FAERS Safety Report 12406685 (Version 1)
Quarter: 2016Q2

REPORT INFORMATION
  Report Type: Spontaneous
  Country: GB (occurrence: GB)
  Receive Date: 20160526
  Receipt Date: 20160526
  Transmission Date: 20160815
  Serious: Yes (Other)
  Sender: FDA-Public Use
  Company Number: GB-TEVA-662862ACC

PATIENT
  Age: 9 Year
  Sex: Female
  Weight: 30 kg

DRUGS (15)
  1. APREPITANT. [Concomitant]
     Active Substance: APREPITANT
  2. AZATHIOPRINE. [Concomitant]
     Active Substance: AZATHIOPRINE
  3. PREDNISOLONE. [Concomitant]
     Active Substance: PREDNISOLONE
  4. SALBUTAMOL [Concomitant]
     Active Substance: ALBUTEROL
  5. ATROVENT [Concomitant]
     Active Substance: IPRATROPIUM BROMIDE
  6. ONDANSETRON [Concomitant]
     Active Substance: ONDANSETRON
  7. TACROLIMUS. [Interacting]
     Active Substance: TACROLIMUS
  8. MODIGRAF [Concomitant]
     Active Substance: TACROLIMUS
  9. RANITIDINE. [Concomitant]
     Active Substance: RANITIDINE
  10. TOPIRAMATE. [Suspect]
     Active Substance: TOPIRAMATE
     Indication: CYCLIC VOMITING SYNDROME
     Dosage: INCREASING DOSE UPTO 50 MG TWICE DAILY
     Route: 048
  11. METHYLPHENIDATE. [Concomitant]
     Active Substance: METHYLPHENIDATE
  12. NYSTATIN. [Concomitant]
     Active Substance: NYSTATIN
  13. SEPTRIN [Concomitant]
     Active Substance: SULFAMETHOXAZOLE\TRIMETHOPRIM
  14. ELVANSE [Concomitant]
     Active Substance: LISDEXAMFETAMINE DIMESYLATE
  15. PARACETAMOL [Concomitant]
     Active Substance: ACETAMINOPHEN

REACTIONS (3)
  - Drug interaction [Recovered/Resolved]
  - Blood creatinine increased [Unknown]
  - Drug level decreased [Unknown]
